FAERS Safety Report 8167783 (Version 3)
Quarter: 2012Q4

REPORT INFORMATION
  Report Type: Report from Study
  Country: DE (occurrence: DE)
  Receive Date: 20111004
  Receipt Date: 20120913
  Transmission Date: 20130627
  Serious: Yes (Death, Other)
  Sender: FDA-Public Use
  Company Number: DE-CELGENEUS-062-50794-11092480

PATIENT
  Age: 77 Year
  Sex: Male
  Weight: 80 kg

DRUGS (9)
  1. VIDAZA [Suspect]
     Indication: ACUTE MYELOID LEUKEMIA
     Route: 065
     Dates: start: 20110528, end: 20110601
  2. VIDAZA [Suspect]
     Route: 065
     Dates: start: 20110627, end: 20110701
  3. CYTARABINE [Suspect]
     Indication: ACUTE MYELOID LEUKEMIA
     Dosage: 3940
     Route: 065
     Dates: start: 20110914, end: 20110916
  4. IDARUBICIN [Suspect]
     Indication: ACUTE MYELOID LEUKEMIA
     Route: 065
  5. ETOPOSID [Suspect]
     Indication: ACUTE MYELOID LEUKEMIA
     Route: 065
  6. LENOGRASTIM [Suspect]
     Indication: ACUTE MYELOID LEUKEMIA
     Route: 065
     Dates: start: 20110923, end: 20110929
  7. TAZOBACTAM [Suspect]
     Indication: INFECTION PROPHYLAXIS
     Route: 041
     Dates: start: 20110915, end: 20110916
  8. PIPERACILLIN [Suspect]
     Indication: INFECTION PROPHYLAXIS
     Dosage: 12 Gram
     Route: 041
     Dates: start: 20110915, end: 20110916
  9. TAVANIC [Concomitant]
     Indication: INFECTION PROPHYLAXIS
     Route: 041
     Dates: start: 20110914, end: 20110915

REACTIONS (3)
  - Urosepsis [Fatal]
  - Chills [Recovered/Resolved]
  - Leukaemia recurrent [Unknown]
